FAERS Safety Report 14154007 (Version 2)
Quarter: 2017Q4

REPORT INFORMATION
  Report Type: Report from Study
  Country: BE (occurrence: BE)
  Receive Date: 20171102
  Receipt Date: 20171117
  Transmission Date: 20180321
  Serious: Yes (Hospitalization)
  Sender: FDA-Public Use
  Company Number: BE-B.I. PHARMACEUTICALS,INC./RIDGEFIELD-2017-BI-043668

PATIENT
  Age: 77 Year
  Sex: Female
  Weight: 64 kg

DRUGS (15)
  1. DOLMAD DUO [Concomitant]
     Indication: ARTHRALGIA
     Route: 048
     Dates: start: 2010
  2. SANDOSTATIN LAR DEPOT [Concomitant]
     Active Substance: OCTREOTIDE ACETATE
     Indication: DUODENAL ULCER
     Route: 030
     Dates: start: 20170731
  3. BLINDED NINTEDANIB [Suspect]
     Active Substance: NINTEDANIB
     Indication: ENDOMETRIAL CANCER
     Route: 048
     Dates: start: 20170616
  4. PRETERAX [Concomitant]
     Active Substance: INDAPAMIDE\PERINDOPRIL
     Indication: HYPERTENSION
     Dosage: DAILY DOSE: 35-0.625 MG
     Route: 048
     Dates: start: 20170731
  5. CRESTOR [Concomitant]
     Active Substance: ROSUVASTATIN CALCIUM
     Indication: HYPERCHOLESTEROLAEMIA
     Route: 048
     Dates: start: 2010
  6. CARBOPLATIN. [Suspect]
     Active Substance: CARBOPLATIN
     Indication: OVARIAN CANCER
     Dosage: FORM STRENGTH: 5 AUC
     Route: 042
     Dates: start: 20170616, end: 20170912
  7. PACLITAXEL. [Suspect]
     Active Substance: PACLITAXEL
     Indication: OVARIAN CANCER
     Dosage: FORM STRENGTH: 175MG/M2
     Route: 042
     Dates: start: 20170616, end: 20170912
  8. CALCIUM CARBONATE. [Concomitant]
     Active Substance: CALCIUM CARBONATE
     Indication: HYPOCALCAEMIA
     Dosage: UNIT DOSE: 16R
     Route: 048
     Dates: start: 20170827
  9. ZOLPIDEM [Concomitant]
     Active Substance: ZOLPIDEM\ZOLPIDEM TARTRATE
     Indication: INSOMNIA
     Route: 048
  10. PANTOPRAZOLE [Concomitant]
     Active Substance: PANTOPRAZOLE
     Indication: PROPHYLAXIS
     Route: 048
     Dates: start: 201704
  11. BLINDED NINTEDANIB [Suspect]
     Active Substance: NINTEDANIB
     Indication: OVARIAN CANCER
     Route: 048
     Dates: start: 20170617, end: 20170730
  12. COVERSYL [Concomitant]
     Active Substance: PERINDOPRIL
     Indication: HYPERTENSION
     Route: 048
     Dates: start: 2004
  13. DAFALGAN [Concomitant]
     Active Substance: ACETAMINOPHEN
     Indication: ARTHRALGIA
     Route: 048
     Dates: start: 20170714
  14. DAFALGAN [Concomitant]
     Active Substance: ACETAMINOPHEN
     Indication: DUODENAL ULCER
  15. LYRICA [Concomitant]
     Active Substance: PREGABALIN
     Indication: NEUROPATHY PERIPHERAL
     Route: 048
     Dates: start: 2016

REACTIONS (3)
  - Small intestinal obstruction [Recovered/Resolved]
  - Pneumatosis intestinalis [Recovered/Resolved]
  - Small intestinal obstruction [Not Recovered/Not Resolved]

NARRATIVE: CASE EVENT DATE: 20170730
